FAERS Safety Report 10095686 (Version 3)
Quarter: 2014Q3

REPORT INFORMATION
  Report Type: Spontaneous
  Country: US (occurrence: US)
  Receive Date: 20140422
  Receipt Date: 20140917
  Transmission Date: 20150326
  Serious: Yes (Hospitalization, Other)
  Sender: FDA-Public Use
  Company Number: US-009507513-1404USA010040

PATIENT
  Sex: Male

DRUGS (1)
  1. PROPECIA [Suspect]
     Active Substance: FINASTERIDE
     Indication: ANDROGENETIC ALOPECIA
     Dosage: 1 MG, DAILY
     Route: 048
     Dates: start: 19980228, end: 2007

REACTIONS (18)
  - Bladder cancer [Unknown]
  - Benign prostatic hyperplasia [Unknown]
  - Physical assault [Unknown]
  - Bladder neoplasm surgery [Unknown]
  - Asthenia [Unknown]
  - Prostatomegaly [Unknown]
  - Musculoskeletal pain [Unknown]
  - Rhinalgia [Unknown]
  - Cystitis glandularis [Unknown]
  - Bladder operation [Unknown]
  - Bladder operation [Unknown]
  - Nephrolithiasis [Unknown]
  - Infertility male [Not Recovered/Not Resolved]
  - Depression [Not Recovered/Not Resolved]
  - Cognitive disorder [Not Recovered/Not Resolved]
  - Muscle atrophy [Unknown]
  - Sexual dysfunction [Not Recovered/Not Resolved]
  - Erectile dysfunction [Unknown]

NARRATIVE: CASE EVENT DATE: 2001
